FAERS Safety Report 7099483-0 (Version None)
Quarter: 2010Q4

REPORT INFORMATION
  Report Type: 
  Country: None (occurrence: None)
  Receive Date: 20101112
  Receipt Date: 20101109
  Transmission Date: 20110411
  Serious: Yes (Disabling)
  Sender: FDA-Public Use
  Company Number: US-MERCK-1010USA01292

PATIENT
  Age: 35 Year
  Sex: Female

DRUGS (5)
  1. IVEMEND [Suspect]
     Indication: PROPHYLAXIS OF NAUSEA AND VOMITING
     Route: 042
     Dates: start: 20101008, end: 20101008
  2. EMEND [Suspect]
     Indication: PROPHYLAXIS OF NAUSEA AND VOMITING
     Route: 048
     Dates: start: 20101009, end: 20101010
  3. COMPAZINE [Concomitant]
     Route: 065
  4. DEXAMETHASONE [Concomitant]
     Route: 048
  5. ALOXI [Concomitant]
     Route: 065

REACTIONS (3)
  - HYPOKALAEMIA [None]
  - NAUSEA [None]
  - VOMITING [None]
